FAERS Safety Report 7776508-8 (Version None)
Quarter: 2011Q3

REPORT INFORMATION
  Report Type: 
  Country: None (occurrence: None)
  Receive Date: 20110926
  Receipt Date: 20110922
  Transmission Date: 20111222
  Serious: Yes (Death, Other)
  Sender: FDA-Public Use
  Company Number: VE-PFIZER INC-2011196327

PATIENT
  Age: 79 Year
  Sex: Male

DRUGS (1)
  1. LIPITOR [Suspect]
     Indication: CARDIAC PACEMAKER INSERTION
     Dosage: 10 MG, 1X/DAY
     Route: 048
     Dates: start: 20100801

REACTIONS (2)
  - RESPIRATORY ARREST [None]
  - THROMBOSIS [None]
